FAERS Safety Report 6392315-5 (Version None)
Quarter: 2009Q4

REPORT INFORMATION
  Report Type: 
  Country: None (occurrence: None)
  Receive Date: 20091007
  Receipt Date: 20090922
  Transmission Date: 20100525
  Serious: Yes (Other)
  Sender: FDA-Public Use
  Company Number: PHEH2009US11508

PATIENT
  Sex: Female
  Weight: 63.492 kg

DRUGS (5)
  1. ZOLEDRONIC ACID [Suspect]
     Indication: METASTASES TO BONE
     Dosage: UNK, UNK
     Route: 042
     Dates: start: 20070101, end: 20070101
  2. SYNTHROID [Suspect]
     Indication: HYPOTHYROIDISM
     Dosage: 75 UG, QD
     Route: 048
  3. LIOTHYRONINE SODIUM [Suspect]
     Indication: HYPOTHYROIDISM
     Dosage: UNK, DAILY
     Route: 048
     Dates: start: 20081201, end: 20090801
  4. ARIMIDEX [Concomitant]
     Dosage: UNK, UNK
     Dates: start: 20040101
  5. RADIATION THERAPY [Concomitant]
     Dosage: UNK, UNK
     Dates: start: 20040101

REACTIONS (3)
  - ABDOMINAL DISCOMFORT [None]
  - ABDOMINAL PAIN [None]
  - OSTEONECROSIS [None]
